FAERS Safety Report 9658408 (Version 1)
Quarter: 2013Q4

REPORT INFORMATION
  Report Type: Spontaneous
  Country: HR (occurrence: HR)
  Receive Date: 20131030
  Receipt Date: 20131030
  Transmission Date: 20140711
  Serious: Yes (Hospitalization)
  Sender: FDA-Public Use
  Company Number: HR-B.I. PHARMACEUTICALS,INC./RIDGEFIELD-2013-BI-34474HR

PATIENT
  Age: 79 Year
  Sex: Male

DRUGS (6)
  1. MICARDIS [Suspect]
     Indication: HYPERTENSION
     Dosage: 40 MG
     Route: 048
     Dates: start: 20130825, end: 20130826
  2. CARVELOL/CARVEDILOLUM [Concomitant]
     Indication: HYPERTENSION
     Dosage: 12.5 MG
     Route: 048
     Dates: start: 2002
  3. ISMN JADRAN 2/ISOSORBIDE MONONITRATE [Concomitant]
     Indication: HYPERTENSION
     Dosage: 20 MG
     Route: 048
     Dates: start: 2007
  4. NORVASC/AMLODIPINE BESILATE [Concomitant]
     Indication: HYPERTENSION
     Dosage: 10 MG
     Route: 048
     Dates: start: 2007
  5. SIOFOR 500/METFORMIN HYDROCHLORIDE [Concomitant]
     Indication: TYPE 2 DIABETES MELLITUS
     Dosage: 1000 MG
     Route: 048
     Dates: start: 2005
  6. SORTIS/ATORVASTATIN CALCIUM [Concomitant]
     Indication: LIPID METABOLISM DISORDER
     Dosage: 20 MG
     Route: 048
     Dates: start: 2005

REACTIONS (4)
  - Choking [Recovered/Resolved]
  - Local swelling [Recovered/Resolved]
  - Hypersensitivity [Recovered/Resolved]
  - Rash [Recovered/Resolved]
